FAERS Safety Report 4944451-5 (Version None)
Quarter: 2006Q1

REPORT INFORMATION
  Report Type: 
  Country: None (occurrence: None)
  Receive Date: 20060104
  Receipt Date: 20050812
  Transmission Date: 20060701
  Serious: Yes (Other)
  Sender: FDA-Public Use
  Company Number: A03200502502

PATIENT
  Age: 43 Year
  Sex: Female
  Weight: 86.637 kg

DRUGS (6)
  1. ELOXATIN [Suspect]
     Indication: COLON CANCER STAGE II
     Dosage: MG Q2W-INTRAVENOUS NOS
     Route: 042
     Dates: start: 20050707, end: 20050707
  2. FLUOROURACIL [Concomitant]
  3. LEUCOVORIN CALCIUM [Concomitant]
  4. WARFARIN SODIUM [Concomitant]
  5. ONDANSETRON HYDROCHLORIDE [Concomitant]
  6. LOPERAMIDE HYDROCHLORIDE [Concomitant]

REACTIONS (13)
  - ANGIONEUROTIC OEDEMA [None]
  - ASTHENIA [None]
  - DIARRHOEA [None]
  - ERYTHEMA [None]
  - FLUSHING [None]
  - HEADACHE [None]
  - LACRIMATION INCREASED [None]
  - MALAISE [None]
  - OEDEMA [None]
  - PARAESTHESIA [None]
  - RHINORRHOEA [None]
  - SINUS CONGESTION [None]
  - TYPE IV HYPERSENSITIVITY REACTION [None]
